FAERS Safety Report 15558719 (Version 1)
Quarter: 2018Q4

REPORT INFORMATION
  Report Type: Report from Study
  Country: IT (occurrence: IT)
  Receive Date: 20181029
  Receipt Date: 20181029
  Transmission Date: 20190205
  Serious: Yes (Hospitalization)
  Sender: FDA-Public Use
  Company Number: IT-AXELLIA-002002

PATIENT
  Age: 56 Year
  Sex: Male
  Weight: 66 kg

DRUGS (11)
  1. VANCOMYCIN [Suspect]
     Active Substance: VANCOMYCIN
     Indication: BACTERIAL INFECTION
     Route: 041
     Dates: start: 20180718, end: 20180810
  2. CANRENOIC ACID [Concomitant]
     Active Substance: CANRENOIC ACID
     Indication: CARDIAC FAILURE
     Route: 048
  3. IVABRADINE/IVABRADINE HYDROCHLORIDE [Concomitant]
     Indication: CARDIAC FAILURE
     Route: 048
  4. ALLOPURINOL. [Concomitant]
     Active Substance: ALLOPURINOL
     Indication: GOUT
     Route: 048
  5. FUROSEMIDE. [Concomitant]
     Active Substance: FUROSEMIDE
     Indication: CARDIAC FAILURE
     Route: 048
  6. BISOPROLOL [Concomitant]
     Active Substance: BISOPROLOL
     Indication: CARDIAC FAILURE
     Route: 048
  7. RIFAMPICIN [Suspect]
     Active Substance: RIFAMPIN
     Indication: BACTERIAL INFECTION
     Route: 041
     Dates: start: 20180809, end: 20180810
  8. RANITIDINE. [Concomitant]
     Active Substance: RANITIDINE
     Indication: GASTRODUODENAL ULCER
     Route: 048
  9. RAMIPRIL ACTAVIS [Concomitant]
     Active Substance: RAMIPRIL
     Indication: CARDIAC FAILURE
     Route: 048
  10. WARFARIN [Concomitant]
     Active Substance: WARFARIN
     Indication: CARDIAC FAILURE
  11. AMIODARONE [Concomitant]
     Active Substance: AMIODARONE
     Indication: CARDIAC FAILURE
     Route: 048

REACTIONS (1)
  - Hypertransaminasaemia [Recovering/Resolving]

NARRATIVE: CASE EVENT DATE: 20180810
